FAERS Safety Report 23858260 (Version 1)
Quarter: 2024Q2

REPORT INFORMATION
  Report Type: Spontaneous
  Country: US (occurrence: US)
  Receive Date: 20240515
  Receipt Date: 20240515
  Transmission Date: 20240715
  Serious: No
  Sender: FDA-Public Use
  Company Number: US-PFIZER INC-PV202400063196

PATIENT
  Age: 69 Year
  Sex: Female

DRUGS (1)
  1. IBRANCE [Suspect]
     Active Substance: PALBOCICLIB
     Dosage: TAKE 1 TABLET BY MOUTH EVERY MORNING FOR 21 DAY(S) ON THEN 7 DAY(S) OFF THEN REPEAT CYCLE
     Route: 048

REACTIONS (1)
  - Laboratory test abnormal [Unknown]
